FAERS Safety Report 22269032 (Version 1)
Quarter: 2023Q2

REPORT INFORMATION
  Report Type: Spontaneous
  Country: US (occurrence: US)
  Receive Date: 20230501
  Receipt Date: 20230501
  Transmission Date: 20230722
  Serious: No
  Sender: FDA-Public Use
  Company Number: US-AIMMUNE THERAPEUTICS, INC.-2022AIMT02873

PATIENT

DRUGS (4)
  1. PALFORZIA [Suspect]
     Active Substance: PEANUT
     Indication: Food allergy
     Dosage: IDE (0.5MG-6MG), ONCE
     Route: 048
     Dates: start: 20220502, end: 20220502
  2. PALFORZIA [Suspect]
     Active Substance: PEANUT
     Dosage: 300MG, 1X/DAY
     Route: 048
     Dates: start: 20221005
  3. PALFORZIA [Suspect]
     Active Substance: PEANUT
     Dosage: 300MG, ONCE, LAST DOSE PRIOR TO EVENTS
     Route: 048
  4. PALFORZIA [Suspect]
     Active Substance: PEANUT
     Dosage: 300MG, 1X/DAY, DOSE RESUMED
     Route: 048

REACTIONS (2)
  - Product distribution issue [Recovered/Resolved]
  - Asthma [Recovered/Resolved]
